FAERS Safety Report 23848836 (Version 1)
Quarter: 2024Q2

REPORT INFORMATION
  Report Type: Spontaneous
  Country: US (occurrence: None)
  Receive Date: 20240510
  Receipt Date: 20240510
  Transmission Date: 20240715
  Serious: No
  Sender: FDA-Public Use
  Company Number: None

PATIENT
  Sex: 0

DRUGS (1)
  1. TECFIDERA [Suspect]
     Active Substance: DIMETHYL FUMARATE

REACTIONS (5)
  - Illness [None]
  - Influenza [None]
  - Flushing [None]
  - Erythema [None]
  - Burning sensation [None]
